FAERS Safety Report 12587853 (Version 2)
Quarter: 2017Q2

REPORT INFORMATION
  Report Type: Other
  Country: PR (occurrence: PR)
  Receive Date: 20160725
  Receipt Date: 20170509
  Transmission Date: 20170830
  Serious: Yes (Hospitalization)
  Sender: FDA-Public Use
  Company Number: PR-MERCK KGAA-1055490

PATIENT
  Age: 74 Year
  Sex: Female

DRUGS (5)
  1. MACROGOL [Concomitant]
     Active Substance: POLYETHYLENE GLYCOLS
  2. ESCITALOPRAM [Concomitant]
     Active Substance: ESCITALOPRAM OXALATE
  3. LEKOVIT CA [Concomitant]
     Active Substance: CALCIUM CARBONATE\CHOLECALCIFEROL
  4. NOVOTHYROX [Suspect]
     Active Substance: LEVOTHYROXINE SODIUM
     Indication: AUTOIMMUNE THYROIDITIS
  5. SIMVASTATIN. [Concomitant]
     Active Substance: SIMVASTATIN

REACTIONS (2)
  - Stress cardiomyopathy [Recovered/Resolved]
  - Blood thyroid stimulating hormone decreased [Unknown]
